FAERS Safety Report 24772324 (Version 2)
Quarter: 2025Q1

REPORT INFORMATION
  Report Type: Spontaneous
  Country: PE (occurrence: PE)
  Receive Date: 20241224
  Receipt Date: 20250220
  Transmission Date: 20250408
  Serious: Yes (Other)
  Sender: PFIZER
  Company Number: PE-PFIZER INC-PV202400167153

PATIENT
  Age: 8 Year
  Sex: Male

DRUGS (1)
  1. SOMATROPIN [Suspect]
     Active Substance: SOMATROPIN
     Route: 058
     Dates: start: 20230727

REACTIONS (1)
  - Renal tubular acidosis [Unknown]

NARRATIVE: CASE EVENT DATE: 20240101
